FAERS Safety Report 19799040 (Version 1)
Quarter: 2021Q3

REPORT INFORMATION
  Report Type: Spontaneous
  Country: US (occurrence: US)
  Receive Date: 20210907
  Receipt Date: 20210907
  Transmission Date: 20211014
  Serious: No
  Sender: FDA-Public Use
  Company Number: US-PFIZER INC-202101013655

PATIENT
  Age: 81 Year
  Sex: Female
  Weight: 58.06 kg

DRUGS (1)
  1. BRAFTOVI [Suspect]
     Active Substance: ENCORAFENIB
     Indication: COLON CANCER
     Dosage: 75 MG, 4X/DAY
     Route: 048
     Dates: start: 202107

REACTIONS (2)
  - Acne [Unknown]
  - Pruritus [Unknown]
